FAERS Safety Report 9408747 (Version 1)
Quarter: 2013Q3

REPORT INFORMATION
  Report Type: Spontaneous
  Country: JP (occurrence: JP)
  Receive Date: 20130718
  Receipt Date: 20130718
  Transmission Date: 20140515
  Serious: Yes (Hospitalization)
  Sender: FDA-Public Use
  Company Number: JP-009507513-1307JPN006900

PATIENT
  Sex: Female

DRUGS (4)
  1. EMEND [Suspect]
     Indication: PROPHYLAXIS OF NAUSEA AND VOMITING
     Route: 048
  2. EMEND [Suspect]
     Indication: PROPHYLAXIS OF NAUSEA AND VOMITING
     Route: 048
  3. DEXAMETHASONE SODIUM PHOSPHATE [Concomitant]
  4. DEXAMETHASONE [Concomitant]

REACTIONS (1)
  - Pneumocystis jirovecii pneumonia [Recovered/Resolved]
